FAERS Safety Report 23810219 (Version 3)
Quarter: 2024Q4

REPORT INFORMATION
  Report Type: Spontaneous
  Country: IE (occurrence: IE)
  Receive Date: 20240502
  Receipt Date: 20241009
  Transmission Date: 20250114
  Serious: Yes (Other)
  Sender: SANDOZ
  Company Number: None

PATIENT
  Age: 43 Year
  Sex: Female

DRUGS (4)
  1. MIDAZOLAM HYDROCHLORIDE [Suspect]
     Active Substance: MIDAZOLAM HYDROCHLORIDE
     Indication: Oocyte harvest
     Dosage: 6 ML,6 ML ((CONCENTRATION: 10 MG/2 ML) ^STANDARD DOSE^EXP 03/26)
     Route: 042
     Dates: start: 20240327, end: 20240327
  2. MORPHINE [Suspect]
     Active Substance: MORPHINE
     Dosage: 0.2 ML,0.2 ML (EXP 04/25)
     Route: 042
     Dates: start: 20240327, end: 20240327
  3. MORPHINE [Suspect]
     Active Substance: MORPHINE
     Indication: Oocyte harvest
     Dosage: 5 ML,(^STANDARD DOSE^EXP 04/25)
     Route: 042
     Dates: start: 20240327, end: 20240327
  4. ONDANSETRON [Suspect]
     Active Substance: ONDANSETRON
     Indication: Oocyte harvest
     Dosage: 4 ML (^STANDARD DOSE^EXP 10/26
     Route: 042
     Dates: start: 20240327, end: 20240327

REACTIONS (5)
  - Discomfort [Recovered/Resolved]
  - Hypertension [Recovered/Resolved]
  - Pain [Recovered/Resolved]
  - Tachycardia [Recovered/Resolved]
  - Atrial fibrillation [Recovered/Resolved]

NARRATIVE: CASE EVENT DATE: 20240327
